FAERS Safety Report 6912471-7 (Version None)
Quarter: 2010Q3

REPORT INFORMATION
  Report Type: 
  Country: None (occurrence: None)
  Receive Date: 20100806
  Receipt Date: 20080516
  Transmission Date: 20110219
  Serious: No
  Sender: FDA-Public Use
  Company Number: US-PFIZER INC-2008042753

PATIENT
  Sex: Female

DRUGS (2)
  1. DETROL LA [Suspect]
  2. ACTONEL [Suspect]

REACTIONS (1)
  - VISION BLURRED [None]
